FAERS Safety Report 5066684-2 (Version None)
Quarter: 2006Q3

REPORT INFORMATION
  Report Type: 
  Country: None (occurrence: None)
  Receive Date: 20060801
  Receipt Date: 20060725
  Transmission Date: 20061208
  Serious: Yes (Other)
  Sender: FDA-Public Use
  Company Number: US-GLAXOSMITHKLINE-A0614025A

PATIENT
  Age: 51 Year
  Sex: Female

DRUGS (2)
  1. ADVAIR DISKUS 100/50 [Suspect]
     Indication: ASTHMA
     Route: 055
  2. SINGULAIR [Concomitant]

REACTIONS (5)
  - ELECTROCARDIOGRAM ABNORMAL [None]
  - ELECTROCARDIOGRAM T WAVE INVERSION [None]
  - LIVER FUNCTION TEST ABNORMAL [None]
  - PALPITATIONS [None]
  - VENTRICULAR EXTRASYSTOLES [None]
